FAERS Safety Report 15825503 (Version 1)
Quarter: 2018Q4

REPORT INFORMATION
  Report Type: Spontaneous
  Country: US (occurrence: US)
  Receive Date: 20181217
  Receipt Date: 20181217
  Transmission Date: 20190205
  Serious: No
  Sender: FDA-Public Use
  Company Number: None

PATIENT
  Age: 34 Year
  Sex: Female

DRUGS (1)
  1. RASUVO [Suspect]
     Active Substance: METHOTREXATE SODIUM
     Indication: RHEUMATOID ARTHRITIS
     Dosage: INJECT 20MG (0.4ML) SUBCUTANEOUSLY  ONCE  WEEKLY ON  THE SAME DAY EACH WEEK  AS DIRECTED
     Route: 058
     Dates: start: 201708

REACTIONS (1)
  - Malaise [None]
